FAERS Safety Report 7968616-3 (Version None)
Quarter: 2011Q4

REPORT INFORMATION
  Report Type: 
  Country: None (occurrence: None)
  Receive Date: 20111209
  Receipt Date: 20111129
  Transmission Date: 20120403
  Serious: Yes (Hospitalization)
  Sender: FDA-Public Use
  Company Number: US-JNJFOC-20111201043

PATIENT
  Sex: Male
  Weight: 49.9 kg

DRUGS (5)
  1. MULTIPLE VITAMIN [Concomitant]
  2. REMICADE [Suspect]
     Indication: CROHN'S DISEASE
     Route: 042
     Dates: start: 20060315
  3. CALCIUM CARBONATE [Concomitant]
  4. BUDESONIDE [Concomitant]
  5. PREDNISONE [Concomitant]

REACTIONS (1)
  - CROHN'S DISEASE [None]
